FAERS Safety Report 5646517-3 (Version None)
Quarter: 2008Q1

REPORT INFORMATION
  Report Type: 
  Country: None (occurrence: None)
  Receive Date: 20080227
  Receipt Date: 20080214
  Transmission Date: 20080703
  Serious: Yes (Hospitalization)
  Sender: FDA-Public Use
  Company Number: DSJ-2008-01685

PATIENT
  Age: 69 Year
  Sex: Male

DRUGS (1)
  1. SALIGREN (CAPSULE) [Suspect]
     Indication: SJOGREN'S SYNDROME
     Dates: start: 20080213, end: 20080214

REACTIONS (1)
  - ATRIAL FIBRILLATION [None]
